FAERS Safety Report 4733788-0 (Version None)
Quarter: 2005Q3

REPORT INFORMATION
  Report Type: 
  Country: None (occurrence: None)
  Receive Date: 20050729
  Receipt Date: 20050711
  Transmission Date: 20060218
  Serious: Yes (Hospitalization)
  Sender: FDA-Public Use
  Company Number: FR_050306089

PATIENT
  Age: 75 Year
  Sex: Female

DRUGS (5)
  1. FORTEO [Suspect]
     Indication: OSTEOPOROSIS
     Dosage: 20 UG/1 DAY
     Dates: start: 20050124
  2. SINTROM [Concomitant]
  3. LEXOMIL(BROMAZEPAM) [Concomitant]
  4. BISOPROLOL FUMARATE [Concomitant]
  5. DOLIPRANE(PARACETAMOL) [Concomitant]

REACTIONS (3)
  - BURSITIS [None]
  - JOINT SWELLING [None]
  - OEDEMA PERIPHERAL [None]
